FAERS Safety Report 10593020 (Version 1)
Quarter: 2014Q4

REPORT INFORMATION
  Report Type: Spontaneous
  Country: US (occurrence: None)
  Receive Date: 20141118
  Receipt Date: 20141118
  Transmission Date: 20150529
  Serious: Yes (Other)
  Sender: FDA-Public Use
  Company Number: None

PATIENT
  Sex: Female
  Weight: 104 kg

DRUGS (6)
  1. JOHNSONS BABY POWDER [Suspect]
     Active Substance: TALC
     Indication: SKIN ODOUR ABNORMAL
     Dosage: LITTLE BIT, DAILY, TOPICAL
     Route: 061
  2. JOHNSONS BABY POWDER [Suspect]
     Active Substance: TALC
     Indication: HYPERHIDROSIS
     Dosage: LITTLE BIT, DAILY, TOPICAL
     Route: 061
  3. BENICAR [Concomitant]
     Active Substance: OLMESARTAN MEDOXOMIL
  4. JOHNSONS BABY POWDER [Suspect]
     Active Substance: TALC
     Indication: HYPERHIDROSIS
     Dosage: LITTLE BIT, DAILY, TOPICAL
     Route: 061
  5. TOPROL XL [Concomitant]
     Active Substance: METOPROLOL SUCCINATE
  6. JOHNSONS BABY POWDER [Suspect]
     Active Substance: TALC
     Indication: SKIN ODOUR ABNORMAL
     Dosage: LITTLE BIT, DAILY, TOPICAL
     Route: 061

REACTIONS (1)
  - Uterine cancer [None]
